FAERS Safety Report 15775101 (Version 1)
Quarter: 2018Q4

REPORT INFORMATION
  Report Type: Spontaneous
  Country: US (occurrence: US)
  Receive Date: 20181231
  Receipt Date: 20181231
  Transmission Date: 20190205
  Serious: No
  Sender: FDA-Public Use
  Company Number: PHEH2018US054548

PATIENT
  Sex: Female
  Weight: 68.95 kg

DRUGS (1)
  1. AFINITOR [Suspect]
     Active Substance: EVEROLIMUS
     Indication: CHEMOTHERAPY MULTIPLE AGENTS SYSTEMIC
     Dosage: 10 MG, ONCE DAILY
     Route: 048
     Dates: start: 20180913

REACTIONS (2)
  - Abdominal pain upper [Unknown]
  - Flatulence [Unknown]
